FAERS Safety Report 7128674-5 (Version None)
Quarter: 2010Q4

REPORT INFORMATION
  Report Type: 
  Country: None (occurrence: None)
  Receive Date: 20101130
  Receipt Date: 20101118
  Transmission Date: 20110411
  Serious: Yes (Other)
  Sender: FDA-Public Use
  Company Number: GB-TEVA-256623ISR

PATIENT
  Age: 90 Year
  Sex: Female

DRUGS (5)
  1. WARFARIN [Suspect]
     Indication: ATRIAL FIBRILLATION
     Route: 048
     Dates: start: 20100809
  2. WARFARIN [Suspect]
     Route: 048
     Dates: start: 20100817
  3. WARFARIN [Suspect]
     Route: 048
     Dates: start: 20100902
  4. WARFARIN [Suspect]
     Route: 048
     Dates: start: 20100914
  5. WARFARIN [Suspect]
     Route: 048
     Dates: start: 20100922

REACTIONS (5)
  - DIARRHOEA [None]
  - DISEASE PROGRESSION [None]
  - MACULAR DEGENERATION [None]
  - MALAISE [None]
  - NAUSEA [None]
